FAERS Safety Report 19010056 (Version 1)
Quarter: 2021Q1

REPORT INFORMATION
  Report Type: Spontaneous
  Country: FR (occurrence: FR)
  Receive Date: 20210315
  Receipt Date: 20210315
  Transmission Date: 20210420
  Serious: Yes (Other)
  Sender: FDA-Public Use
  Company Number: NVSC2021FR053353

PATIENT
  Age: 81 Year
  Sex: Male

DRUGS (14)
  1. ETOMIDATE LIPURO [Suspect]
     Active Substance: ETOMIDATE
     Indication: INDUCTION OF ANAESTHESIA
     Dosage: 40 MG, ONCE/SINGLE
     Route: 042
     Dates: start: 20210222, end: 20210222
  2. CHLORURE DE CALCIUM [Suspect]
     Active Substance: CALCIUM CHLORIDE
     Indication: PRODUCT USED FOR UNKNOWN INDICATION
     Dosage: 2 G, ONCE/SINGLE
     Route: 042
     Dates: start: 20210222, end: 20210222
  3. NORADRENALINE [Suspect]
     Active Substance: NOREPINEPHRINE
     Indication: PRODUCT USED FOR UNKNOWN INDICATION
     Dosage: 0.82 MG, QD
     Route: 042
     Dates: start: 20210222, end: 20210222
  4. SUXAMETHONIUM [Suspect]
     Active Substance: SUCCINYLCHOLINE
     Indication: INDUCTION OF ANAESTHESIA
     Dosage: 80 MG, ONCE/SINGLE
     Route: 042
     Dates: start: 20210222, end: 20210222
  5. HEPARINE SODIQUE [Suspect]
     Active Substance: HEPARIN SODIUM
     Indication: PRODUCT USED FOR UNKNOWN INDICATION
     Dosage: 3000 IU, ONCE/SINGLE
     Route: 042
     Dates: start: 20210222, end: 20210222
  6. SUFENTANIL [Concomitant]
     Active Substance: SUFENTANIL
     Indication: PRODUCT USED FOR UNKNOWN INDICATION
     Dosage: UNK
     Route: 065
  7. VANCOMYCINE SANDOZ [Suspect]
     Active Substance: VANCOMYCIN
     Indication: INDUCTION OF ANAESTHESIA
     Dosage: 50 MG, ONCE/SINGLE
     Route: 042
     Dates: start: 20210222, end: 20210222
  8. CONTRAMAL [Suspect]
     Active Substance: TRAMADOL HYDROCHLORIDE
     Indication: PRODUCT USED FOR UNKNOWN INDICATION
     Dosage: 100 MG, ONCE/SINGLE
     Route: 042
     Dates: start: 20210222, end: 20210222
  9. ATRACURIUM HOSPIRA [Suspect]
     Active Substance: ATRACURIUM BESYLATE
     Indication: INDUCTION OF ANAESTHESIA
     Dosage: 150 MG, ONCE/SINGLE
     Route: 042
     Dates: start: 20210222, end: 20210222
  10. TARKA [Concomitant]
     Active Substance: TRANDOLAPRIL\VERAPAMIL HYDROCHLORIDE
     Indication: PRODUCT USED FOR UNKNOWN INDICATION
     Dosage: UNK
     Route: 065
  11. GELOFUSINE [SODIUM CHLORIDE\SUCCINYLATED GELATIN] [Suspect]
     Active Substance: SODIUM CHLORIDE\SUCCINYLATED GELATIN
     Indication: PRODUCT USED FOR UNKNOWN INDICATION
     Dosage: 500 MG, ONCE/SINGLE
     Route: 042
     Dates: start: 20210222, end: 20210222
  12. NITRONAL [Suspect]
     Active Substance: NITROGLYCERIN
     Indication: PRODUCT USED FOR UNKNOWN INDICATION
     Dosage: 600 UG, ONCE/SINGLE
     Route: 042
     Dates: start: 20210222, end: 20210222
  13. PERFALGAN [Suspect]
     Active Substance: ACETAMINOPHEN
     Indication: PRODUCT USED FOR UNKNOWN INDICATION
     Dosage: 1 G, ONCE/SINGLE
     Route: 042
     Dates: start: 20210222, end: 20210222
  14. CLOTTAFACT [Suspect]
     Active Substance: FIBRINOGEN HUMAN
     Indication: PRODUCT USED FOR UNKNOWN INDICATION
     Dosage: 3 G, ONCE/SINGLE
     Route: 042
     Dates: start: 20210222, end: 20210222

REACTIONS (1)
  - Erythema [Recovered/Resolved]

NARRATIVE: CASE EVENT DATE: 20210222
